FAERS Safety Report 19217834 (Version 3)
Quarter: 2021Q3

REPORT INFORMATION
  Report Type: Spontaneous
  Country: US (occurrence: US)
  Receive Date: 20210505
  Receipt Date: 20210701
  Transmission Date: 20211014
  Serious: Yes (Death, Hospitalization)
  Sender: FDA-Public Use
  Company Number: US-BRAINTREE LABORATORIES, INC.-2021BTE00303

PATIENT
  Age: 78 Year
  Sex: Female
  Weight: 72.56 kg

DRUGS (10)
  1. PROBIOTIC [Concomitant]
     Active Substance: PROBIOTICS NOS
  2. SUPREP BOWEL PREP [Suspect]
     Active Substance: MAGNESIUM SULFATE\POTASSIUM SULFATE\SODIUM SULFATE
     Indication: COLONOSCOPY
     Dosage: 2 X 6 OZ. BOTTLE, 1X
     Route: 048
     Dates: start: 20210405, end: 20210406
  3. ONGLYZA [Concomitant]
     Active Substance: SAXAGLIPTIN HYDROCHLORIDE
  4. LIPITOR [Concomitant]
     Active Substance: ATORVASTATIN CALCIUM
  5. MULTIVITAMIN [Concomitant]
     Active Substance: VITAMINS
  6. METFORMIN [Concomitant]
     Active Substance: METFORMIN HYDROCHLORIDE
  7. OMEPRAZOLE. [Concomitant]
     Active Substance: OMEPRAZOLE
  8. LEVOTHYROXINE. [Concomitant]
     Active Substance: LEVOTHYROXINE
  9. AVAPRO [Concomitant]
     Active Substance: IRBESARTAN
  10. DIAZIDE [Concomitant]

REACTIONS (17)
  - Dehydration [Not Recovered/Not Resolved]
  - Acetonaemia [Not Recovered/Not Resolved]
  - Diarrhoea [Unknown]
  - Leukocytosis [Not Recovered/Not Resolved]
  - Septic shock [Not Recovered/Not Resolved]
  - Respiratory failure [Not Recovered/Not Resolved]
  - Malnutrition [Not Recovered/Not Resolved]
  - Acute myocardial infarction [Not Recovered/Not Resolved]
  - Dyspepsia [Unknown]
  - Escherichia sepsis [Not Recovered/Not Resolved]
  - Type 2 diabetes mellitus [Unknown]
  - Malaise [Unknown]
  - Nausea [Unknown]
  - Acute kidney injury [Fatal]
  - Escherichia urinary tract infection [Not Recovered/Not Resolved]
  - Colitis microscopic [Not Recovered/Not Resolved]
  - Procedural vomiting [Unknown]

NARRATIVE: CASE EVENT DATE: 202104
